FAERS Safety Report 19477233 (Version 1)
Quarter: 2021Q2

REPORT INFORMATION
  Report Type: Spontaneous
  Country: US (occurrence: US)
  Receive Date: 20210629
  Receipt Date: 20210629
  Transmission Date: 20210717
  Serious: Yes (Hospitalization)
  Sender: FDA-Public Use
  Company Number: None

PATIENT
  Age: 71 Year
  Sex: Male

DRUGS (23)
  1. AMIODARONE [Concomitant]
     Active Substance: AMIODARONE
  2. ALLOPURINOL. [Concomitant]
     Active Substance: ALLOPURINOL
  3. VITAMIN D3 [Concomitant]
     Active Substance: CHOLECALCIFEROL
  4. OPSUMIT [Suspect]
     Active Substance: MACITENTAN
     Indication: PULMONARY HYPERTENSION
     Route: 048
     Dates: start: 20160812
  5. SILDENAFIL. [Concomitant]
     Active Substance: SILDENAFIL
  6. TORSEMIDE. [Concomitant]
     Active Substance: TORSEMIDE
  7. DICLOFENAC TOP GEL [Concomitant]
  8. NORCO [Concomitant]
     Active Substance: ACETAMINOPHEN\HYDROCODONE BITARTRATE
  9. FLONASE [Concomitant]
     Active Substance: FLUTICASONE PROPIONATE
  10. HYDROMORPHONE [Concomitant]
     Active Substance: HYDROMORPHONE
  11. SENNOSIDES. [Concomitant]
     Active Substance: SENNOSIDES
  12. ATOVAQUONE. [Concomitant]
     Active Substance: ATOVAQUONE
  13. DULOXETINE. [Concomitant]
     Active Substance: DULOXETINE
  14. MELATONIN [Concomitant]
     Active Substance: MELATONIN
  15. ALBUTEROL HFA [Concomitant]
     Active Substance: ALBUTEROL SULFATE
  16. UPTRAVI [Concomitant]
     Active Substance: SELEXIPAG
  17. HYDROXYCHLORQUINE [Concomitant]
     Active Substance: HYDROXYCHLOROQUINE
  18. TRAZODONE [Concomitant]
     Active Substance: TRAZODONE HYDROCHLORIDE
  19. DOCUSATE SODIUM. [Concomitant]
     Active Substance: DOCUSATE SODIUM
  20. OMEPRAZOLE. [Concomitant]
     Active Substance: OMEPRAZOLE
  21. ASPIRIN. [Concomitant]
     Active Substance: ASPIRIN
  22. ATORVASTATIN [Concomitant]
     Active Substance: ATORVASTATIN
  23. SPIRIVA RESPIMAT [Concomitant]
     Active Substance: TIOTROPIUM BROMIDE

REACTIONS (3)
  - Chronic respiratory failure [None]
  - Cardiac failure congestive [None]
  - Pneumonia [None]

NARRATIVE: CASE EVENT DATE: 20210619
